FAERS Safety Report 7495669-1 (Version None)
Quarter: 2011Q2

REPORT INFORMATION
  Report Type: 
  Country: None (occurrence: None)
  Receive Date: 20110523
  Receipt Date: 20110518
  Transmission Date: 20111010
  Serious: No
  Sender: FDA-Public Use
  Company Number: US-PFIZER INC-2011107532

PATIENT
  Sex: Female
  Weight: 72.6 kg

DRUGS (5)
  1. PRISTIQ [Suspect]
     Indication: DEPRESSION
     Dosage: 50 MG, 1X/DAY
     Route: 048
     Dates: start: 20110401, end: 20110515
  2. SYNTHROID [Concomitant]
     Indication: HYPOTHYROIDISM
     Dosage: UNK
  3. LIPITOR [Concomitant]
     Indication: BLOOD CHOLESTEROL INCREASED
     Dosage: UNK
  4. NEBIVOLOL [Concomitant]
     Indication: HYPERTENSION
     Dosage: UNK
  5. PRISTIQ [Suspect]
     Indication: ANXIETY

REACTIONS (8)
  - VOMITING [None]
  - TREMOR [None]
  - FATIGUE [None]
  - AGITATION [None]
  - NAUSEA [None]
  - CHILLS [None]
  - FEELING ABNORMAL [None]
  - SOMNOLENCE [None]
